FAERS Safety Report 18805124 (Version 1)
Quarter: 2021Q1

REPORT INFORMATION
  Report Type: Spontaneous
  Country: CA (occurrence: CA)
  Receive Date: 20210129
  Receipt Date: 20210129
  Transmission Date: 20210419
  Serious: Yes (Life-Threatening, Hospitalization)
  Sender: FDA-Public Use
  Company Number: CA-TEVA-2021-CA-1871744

PATIENT
  Age: 17 Year
  Sex: Male
  Weight: 72 kg

DRUGS (7)
  1. VITAMIN D [Concomitant]
     Active Substance: VITAMIN D NOS
  2. LANSOPRAZOLE. [Concomitant]
     Active Substance: LANSOPRAZOLE
  3. NABILONE [Concomitant]
     Active Substance: NABILONE
  4. VINCRISTINE SULFATE. [Suspect]
     Active Substance: VINCRISTINE SULFATE
     Indication: T-CELL LYMPHOMA
     Route: 042
  5. ONDANSETRON [Concomitant]
     Active Substance: ONDANSETRON
  6. METHOTREXATE. [Suspect]
     Active Substance: METHOTREXATE
     Indication: T-CELL LYMPHOMA
     Route: 042
  7. SCOPOLAMINE [Concomitant]
     Active Substance: SCOPOLAMINE

REACTIONS (1)
  - Febrile neutropenia [Recovered/Resolved]
